FAERS Safety Report 8158776-6 (Version None)
Quarter: 2012Q1

REPORT INFORMATION
  Report Type: 
  Country: None (occurrence: None)
  Receive Date: 20120223
  Receipt Date: 20120215
  Transmission Date: 20120608
  Serious: Yes (Other)
  Sender: FDA-Public Use
  Company Number: JP-ASTELLAS-2011US008750

PATIENT
  Sex: Female
  Weight: 49 kg

DRUGS (25)
  1. GEMZAR [Suspect]
     Dosage: 1100 MG/M2, WEEKLY X 3 WKS
     Route: 041
     Dates: start: 20110906, end: 20110920
  2. GEMZAR [Suspect]
     Dosage: 800 MG/M2, UID/QD
     Route: 041
     Dates: start: 20111215, end: 20111215
  3. GEMZAR [Suspect]
     Dosage: 800 MG/M2, UID/QD
     Route: 041
     Dates: start: 20120112, end: 20120112
  4. FUROSEMIDE [Concomitant]
     Indication: PRODUCT USED FOR UNKNOWN INDICATION
     Dosage: 40 MG, UID/QD
     Route: 048
  5. TOUGHMAC E [Concomitant]
     Indication: PRODUCT USED FOR UNKNOWN INDICATION
     Dosage: 4 G, UID/QD
     Route: 048
  6. GEMZAR [Suspect]
     Dosage: 1100 MG/M2, UID/QD
     Route: 041
     Dates: start: 20111110, end: 20111110
  7. GEMZAR [Suspect]
     Dosage: 1100 MG/M2, UID/QD
     Route: 041
     Dates: start: 20111104, end: 20111104
  8. GEMZAR [Suspect]
     Dosage: 1000 MG/M2, UID/QD
     Route: 041
     Dates: start: 20111117, end: 20111117
  9. GEMZAR [Suspect]
     Dosage: 800 MG/M2, UID/QD
     Route: 041
     Dates: start: 20120105, end: 20120105
  10. PRIMPERAN TAB [Concomitant]
     Indication: PRODUCT USED FOR UNKNOWN INDICATION
     Dosage: 15 MG, UID/QD
     Route: 048
  11. URSO 250 [Concomitant]
     Indication: PRODUCT USED FOR UNKNOWN INDICATION
     Dosage: 600 MG, UID/QD
     Route: 048
  12. OXYCONTIN [Concomitant]
     Indication: PRODUCT USED FOR UNKNOWN INDICATION
     Dosage: 20 MG, UID/QD
     Route: 048
  13. ERLOTINIB HYDROCHLORIDE [Suspect]
     Indication: ADENOCARCINOMA PANCREAS
     Dosage: 100 MG, UID/QD
     Route: 048
     Dates: start: 20110906
  14. GEMZAR [Suspect]
     Dosage: 1100 MG/M2, UID/QD
     Route: 041
     Dates: start: 20111020, end: 20111020
  15. TRIMEBUTINE MALEATE [Concomitant]
     Indication: PRODUCT USED FOR UNKNOWN INDICATION
     Dosage: 100 MG, UID/QD
     Route: 048
  16. LEXOTAN [Concomitant]
     Dosage: 2 MG, UID/QD
     Route: 048
     Dates: start: 20110920
  17. GEMZAR [Suspect]
     Dosage: 1100 MG/M2, UID/QD
     Route: 041
     Dates: start: 20111006, end: 20111006
  18. GEMZAR [Suspect]
     Dosage: 1100 MG/M2, UID/QD
     Route: 041
     Dates: start: 20111013, end: 20111013
  19. MIYA BM [Concomitant]
     Indication: PRODUCT USED FOR UNKNOWN INDICATION
     Dosage: 3 G, UID/QD
     Route: 048
     Dates: start: 20110907, end: 20110927
  20. NAPROXEN [Concomitant]
     Indication: PRODUCT USED FOR UNKNOWN INDICATION
     Dosage: 600 MG, UID/QD
     Route: 048
  21. GEMZAR [Suspect]
     Indication: ADENOCARCINOMA PANCREAS
     Dosage: UNK
     Route: 041
     Dates: start: 20110719, end: 20110823
  22. LANSOPRAZOLE [Concomitant]
     Indication: PRODUCT USED FOR UNKNOWN INDICATION
     Dosage: 15 MG, UID/QD
     Route: 048
  23. GEMZAR [Suspect]
     Dosage: 800 MG/M2, UID/QD
     Route: 041
     Dates: start: 20111201, end: 20111201
  24. GEMZAR [Suspect]
     Dosage: 600 MG/M2, UID/QD
     Route: 041
     Dates: start: 20120119
  25. LEXOTAN [Concomitant]
     Indication: PRODUCT USED FOR UNKNOWN INDICATION
     Dosage: 4 MG, UID/QD
     Route: 048
     Dates: start: 20110913, end: 20110919

REACTIONS (8)
  - RASH [None]
  - WHITE BLOOD CELL COUNT DECREASED [None]
  - C-REACTIVE PROTEIN INCREASED [None]
  - DIARRHOEA [None]
  - NASOPHARYNGITIS [None]
  - OROPHARYNGEAL PAIN [None]
  - INSOMNIA [None]
  - CHOLANGITIS [None]
